FAERS Safety Report 11635788 (Version 1)
Quarter: 2015Q4

REPORT INFORMATION
  Report Type: Spontaneous
  Country: US (occurrence: US)
  Receive Date: 20151016
  Receipt Date: 20151016
  Transmission Date: 20160304
  Serious: No
  Sender: FDA-Public Use
  Company Number: US-PFIZER INC-2015332323

PATIENT
  Age: 50 Year
  Sex: Female
  Weight: 68.27 kg

DRUGS (2)
  1. ADVIL MIGRAINE [Suspect]
     Active Substance: IBUPROFEN
     Indication: MIGRAINE
     Dosage: 2 DF, DAILY
     Dates: start: 201509
  2. ADVIL MIGRAINE [Suspect]
     Active Substance: IBUPROFEN
     Indication: PLANTAR FASCIITIS

REACTIONS (3)
  - Expired product administered [Unknown]
  - Product use issue [Unknown]
  - Drug ineffective [Unknown]

NARRATIVE: CASE EVENT DATE: 2015
